FAERS Safety Report 6395401-9 (Version None)
Quarter: 2009Q4

REPORT INFORMATION
  Report Type: 
  Country: None (occurrence: None)
  Receive Date: 20091009
  Receipt Date: 20091001
  Transmission Date: 20100525
  Serious: Yes (Death, Hospitalization)
  Sender: FDA-Public Use
  Company Number: FR-TEVA-211129ISR

PATIENT
  Sex: Male

DRUGS (6)
  1. IRINOTECAN HCL [Suspect]
     Indication: GASTRIC CANCER
  2. EPIRUBICIN [Suspect]
     Indication: GASTRIC CANCER
     Dates: start: 20080707
  3. CISPLATIN [Suspect]
     Indication: GASTRIC CANCER
     Dates: start: 20080707
  4. FLUOROURACIL [Suspect]
     Indication: GASTRIC CANCER
  5. FOLINIC ACID [Suspect]
     Indication: GASTRIC CANCER
  6. CAPECITABINE [Suspect]
     Indication: GASTRIC CANCER
     Dates: start: 20080707

REACTIONS (1)
  - GASTROINTESTINAL HAEMORRHAGE [None]
